FAERS Safety Report 7658711-0 (Version None)
Quarter: 2011Q3

REPORT INFORMATION
  Report Type: 
  Country: None (occurrence: None)
  Receive Date: 20110805
  Receipt Date: 20110728
  Transmission Date: 20111222
  Serious: Yes (Death, Hospitalization, Other)
  Sender: FDA-Public Use
  Company Number: US-BAYER-201010320NA

PATIENT
  Age: 73 Year
  Sex: Male
  Weight: 46.6 kg

DRUGS (28)
  1. PRIMACOR [Concomitant]
     Dosage: UNK
     Dates: start: 20041015
  2. TRASYLOL [Suspect]
     Indication: CORONARY ARTERY BYPASS
     Dosage: 1 ML, TEST DOSE
     Route: 042
     Dates: start: 20041012
  3. TRASYLOL [Suspect]
     Dosage: 100 ML, UNK
     Route: 042
     Dates: start: 20041012, end: 20041012
  4. POTASSIUM CHLORIDE [Concomitant]
  5. MAGNESIUM SULFATE [Concomitant]
     Dosage: 2 MG, UNK
     Route: 042
  6. EPINEPHRINE [Concomitant]
     Dosage: UNK
     Dates: start: 20041015
  7. DOBUTAMINE HCL [Concomitant]
     Dosage: UNK
     Dates: start: 20041015
  8. THROMBIN LOCAL SOLUTION [Concomitant]
     Dosage: 5000 U, UNK
     Dates: start: 20041013
  9. TRASYLOL [Suspect]
     Dosage: UNK
     Route: 042
     Dates: start: 20041013, end: 20041013
  10. LASIX [Concomitant]
     Dosage: 20 MG, UNK
     Route: 042
  11. HEPARIN [Concomitant]
  12. ALBUTEROL SULFATE AUTOHALER [Concomitant]
  13. SYNTHROID [Concomitant]
  14. SODIUM BICARBONATE [Concomitant]
     Dosage: 50MGEQ
     Route: 042
  15. LASIX [Concomitant]
     Dosage: 20 MG, QD
     Route: 048
  16. DOBUTREX [Concomitant]
     Dosage: UNK
  17. RED BLOOD CELLS [Concomitant]
  18. ATROVENT [Concomitant]
  19. ANALGESICS [Concomitant]
     Indication: BACK PAIN
  20. PROPOFOL [Concomitant]
     Route: 042
  21. WHOLE BLOOD [Concomitant]
     Dosage: 8 U, UNK
     Route: 042
     Dates: start: 20041015
  22. TRASYLOL [Suspect]
     Dosage: 4 KIU+2 KIU, LOADING DOSE
     Dates: start: 20041012, end: 20041012
  23. LIDOCAINE [Concomitant]
     Dosage: 5 MG, UNK
     Route: 042
  24. AZMACORT [Concomitant]
  25. LIDOCAINE [Concomitant]
     Dosage: 100 MG, UNK
     Route: 042
  26. TRASYLOL [Suspect]
     Dosage: 50 ML, Q1HR. TOTAL ADMINISTERED DURING SURGERY: 4 MILLION KIU
     Route: 042
     Dates: start: 20041014, end: 20041014
  27. PROTAMINE [Concomitant]
     Dosage: 25CC
     Route: 042
     Dates: start: 20041012
  28. NITROGLYCERIN [Concomitant]

REACTIONS (12)
  - FEAR [None]
  - UNEVALUABLE EVENT [None]
  - PAIN [None]
  - RENAL FAILURE [None]
  - RENAL IMPAIRMENT [None]
  - RENAL INJURY [None]
  - STRESS [None]
  - ANHEDONIA [None]
  - ANXIETY [None]
  - INJURY [None]
  - EMOTIONAL DISTRESS [None]
  - DEATH [None]
